FAERS Safety Report 6778996-2 (Version None)
Quarter: 2010Q2

REPORT INFORMATION
  Report Type: 
  Country: None (occurrence: None)
  Receive Date: 20100618
  Receipt Date: 20100610
  Transmission Date: 20101027
  Serious: Yes (Hospitalization)
  Sender: FDA-Public Use
  Company Number: FR-PFIZER INC-2010072635

PATIENT
  Age: 71 Year
  Sex: Male

DRUGS (5)
  1. TAHOR [Suspect]
     Indication: DYSLIPIDAEMIA
     Dosage: 10 MG, 1X/DAY
     Route: 048
     Dates: start: 20090501
  2. CYMBALTA [Suspect]
     Indication: DEPRESSION
     Dosage: 60 MG, 1X/DAY
     Route: 048
     Dates: start: 20090501, end: 20091120
  3. SKENAN [Suspect]
     Indication: OSTEITIS
     Dosage: 40 MG, 2X/DAY
     Route: 048
     Dates: start: 20090501
  4. ACTISKENAN [Suspect]
     Indication: OSTEITIS
     Dosage: UNK
     Route: 048
     Dates: start: 20090501
  5. PLAVIX [Suspect]
     Indication: ARTERIAL DISORDER
     Dosage: 75 MG, 1X/DAY
     Route: 048
     Dates: start: 20090501, end: 20091120

REACTIONS (1)
  - ECZEMA [None]
